FAERS Safety Report 8928697 (Version 1)
Quarter: 2012Q4

REPORT INFORMATION
  Report Type: 
  Country: US (occurrence: US)
  Receive Date: 20121128
  Receipt Date: 20121128
  Transmission Date: 20130627
  Serious: No
  Sender: FDA-Public Use
  Company Number: US-009507513-1211USA010643

PATIENT
  Sex: Male

DRUGS (4)
  1. JANUMET [Suspect]
     Route: 048
  2. GLIMEPIRIDE [Suspect]
  3. FLOMAX (MORNIFLUMATE) [Concomitant]
     Dosage: daily
  4. B-12 [Concomitant]
     Dosage: once monthly

REACTIONS (1)
  - Vitamin B12 deficiency [Unknown]
